FAERS Safety Report 15271405 (Version 1)
Quarter: 2018Q3

REPORT INFORMATION
  Report Type: Spontaneous
  Country: US (occurrence: US)
  Receive Date: 20180727
  Receipt Date: 20180727
  Transmission Date: 20181010
  Serious: No
  Sender: FDA-Public Use
  Company Number: None

PATIENT
  Age: 53 Year
  Sex: Female
  Weight: 65.25 kg

DRUGS (5)
  1. LITHIUM OROTATE [Concomitant]
     Active Substance: LITHIUM OROTATE
  2. IODORAL [Concomitant]
     Active Substance: IODINE\POTASSIUM IODIDE
  3. GLUTATHIONE [Concomitant]
     Active Substance: GLUTATHIONE
  4. LUNESTA [Suspect]
     Active Substance: ESZOPICLONE
     Indication: INSOMNIA
     Dosage: ?          QUANTITY:1 TABLET(S);?
     Route: 048
     Dates: start: 20180726, end: 20180726
  5. PQQ [Concomitant]

REACTIONS (3)
  - Abdominal pain lower [None]
  - Fatigue [None]
  - Diarrhoea [None]

NARRATIVE: CASE EVENT DATE: 20180726
